FAERS Safety Report 4886793-8 (Version None)
Quarter: 2006Q1

REPORT INFORMATION
  Report Type: 
  Country: None (occurrence: None)
  Receive Date: 20060119
  Receipt Date: 20060111
  Transmission Date: 20060701
  Serious: Yes (Death, Hospitalization)
  Sender: FDA-Public Use
  Company Number: 2006-01-0578

PATIENT
  Age: 75 Year
  Sex: Female

DRUGS (7)
  1. NITROGLYCERIN [Suspect]
  2. LANSOPRAZOLE [Suspect]
  3. ASPIRIN [Suspect]
  4. LISINOPRIL [Suspect]
     Indication: HYPERTENSION
  5. ATENOLOL [Suspect]
  6. FRUSEMIDE [Suspect]
  7. ATORVASTATIN CALCIUM [Suspect]

REACTIONS (11)
  - ACUTE MYOCARDIAL INFARCTION [None]
  - COLON CANCER [None]
  - GASTROINTESTINAL HAEMORRHAGE [None]
  - LARYNGEAL OEDEMA [None]
  - LARYNGOSPASM [None]
  - LOWER RESPIRATORY TRACT INFECTION [None]
  - NEUROMUSCULAR BLOCKADE [None]
  - OVERDOSE [None]
  - POST PROCEDURAL COMPLICATION [None]
  - PULMONARY OEDEMA [None]
  - THERAPY NON-RESPONDER [None]
